FAERS Safety Report 9785461 (Version 1)
Quarter: 2013Q4

REPORT INFORMATION
  Report Type: Spontaneous
  Country: US (occurrence: None)
  Receive Date: 20131226
  Receipt Date: 20131226
  Transmission Date: 20140711
  Serious: Yes (Other)
  Sender: FDA-Public Use
  Company Number: None

PATIENT
  Age: 69 Year
  Sex: Male
  Weight: 81.65 kg

DRUGS (5)
  1. WELCHOL [Suspect]
     Indication: BLOOD CHOLESTEROL INCREASED
     Route: 048
     Dates: start: 20131024, end: 20131028
  2. METFORMIN [Concomitant]
  3. GLIPIZINDE [Concomitant]
  4. LOTREL 5/10 [Concomitant]
  5. BABY ASPIRIN [Concomitant]

REACTIONS (7)
  - Pharyngeal oedema [None]
  - Nausea [None]
  - Oropharyngeal pain [None]
  - Myalgia [None]
  - Influenza like illness [None]
  - Fatigue [None]
  - Cough [None]
